FAERS Safety Report 6458838-5 (Version None)
Quarter: 2009Q4

REPORT INFORMATION
  Report Type: 
  Country: None (occurrence: None)
  Receive Date: 20091123
  Receipt Date: 20091111
  Transmission Date: 20100525
  Serious: Yes (Life-Threatening)
  Sender: FDA-Public Use
  Company Number: 435735

PATIENT
  Age: 15 Year
  Sex: Male

DRUGS (1)
  1. (PROPOFOL) [Suspect]
     Indication: CARDIOVERSION
     Dosage: 100 MG, INTRAVENOUS
     Route: 042

REACTIONS (4)
  - CARDIAC ARREST [None]
  - COMA [None]
  - HYPOXIC ENCEPHALOPATHY [None]
  - MEDICATION ERROR [None]
